FAERS Safety Report 19696580 (Version 1)
Quarter: 2021Q3

REPORT INFORMATION
  Report Type: Spontaneous
  Country: CZ (occurrence: CZ)
  Receive Date: 20210813
  Receipt Date: 20210813
  Transmission Date: 20211014
  Serious: Yes (Death, Other)
  Sender: FDA-Public Use
  Company Number: CZ-AUROBINDO-AUR-APL-2021-035353

PATIENT
  Age: 67 Year
  Sex: Female

DRUGS (10)
  1. FOLINIC ACID [Suspect]
     Active Substance: LEUCOVORIN
     Indication: COLORECTAL ADENOCARCINOMA
     Dosage: UNK
     Route: 065
     Dates: end: 201510
  2. REGORAFENIB. [Suspect]
     Active Substance: REGORAFENIB
     Indication: DISEASE PROGRESSION
     Dosage: UNK
     Route: 065
     Dates: start: 201512
  3. CETUXIMAB. [Suspect]
     Active Substance: CETUXIMAB
     Indication: COLORECTAL ADENOCARCINOMA
     Dosage: UNK
     Route: 065
  4. FOLFIRI CETUXIMAB [CETUXIMAB] [Suspect]
     Active Substance: CETUXIMAB
  5. IRINOTECAN [Suspect]
     Active Substance: IRINOTECAN
     Indication: COLORECTAL ADENOCARCINOMA
     Dosage: UNK
     Route: 065
  6. FOLFIRI CETUXIMAB [FLUOROURACIL] [Suspect]
     Active Substance: FLUOROURACIL
  7. FLUOROURACIL. [Suspect]
     Active Substance: FLUOROURACIL
     Indication: COLORECTAL ADENOCARCINOMA
     Dosage: UNK
     Route: 065
     Dates: end: 201510
  8. IRINOTECAN [Suspect]
     Active Substance: IRINOTECAN
     Indication: COLORECTAL CANCER METASTATIC
     Dosage: UNK
     Route: 042
     Dates: start: 2014, end: 2016
  9. FOLFIRI CETUXIMAB [IRINOTECAN HYDROCHLORIDE] [Suspect]
     Active Substance: IRINOTECAN HYDROCHLORIDE
  10. FOLFIRI CETUXIMAB [LEUCOVORIN CALCIUM] [Suspect]
     Active Substance: LEUCOVORIN CALCIUM
     Indication: COLORECTAL CANCER METASTATIC
     Dosage: UNK
     Route: 042
     Dates: start: 2014, end: 2016

REACTIONS (6)
  - Rash [Recovered/Resolved]
  - Hepatic failure [Fatal]
  - Haematotoxicity [Recovered/Resolved]
  - Sepsis [Fatal]
  - Neutropenia [Unknown]
  - Anaemia [Unknown]

NARRATIVE: CASE EVENT DATE: 2014
